FAERS Safety Report 7609960-9 (Version None)
Quarter: 2011Q3

REPORT INFORMATION
  Report Type: 
  Country: None (occurrence: None)
  Receive Date: 20110714
  Receipt Date: 20110705
  Transmission Date: 20111222
  Serious: Yes (Hospitalization)
  Sender: FDA-Public Use
  Company Number: US-ASTRAZENECA-2011SE37844

PATIENT
  Age: 70 Year
  Sex: Male

DRUGS (2)
  1. NEXIUM [Suspect]
     Dosage: TOTAL DAILY DOSE 40MG, TWO TIMES A DAY
     Route: 048
  2. OMEPRAZOLE [Suspect]
     Route: 048

REACTIONS (4)
  - ENDOSCOPY [None]
  - BARRETT'S OESOPHAGUS [None]
  - OESOPHAGEAL DISORDER [None]
  - OESOPHAGEAL OPERATION [None]
